FAERS Safety Report 10701651 (Version 4)
Quarter: 2015Q1

REPORT INFORMATION
  Report Type: Spontaneous
  Country: US (occurrence: US)
  Receive Date: 20150109
  Receipt Date: 20150316
  Transmission Date: 20150721
  Serious: No
  Sender: FDA-Public Use
  Company Number: US-PFIZER INC-2015007595

PATIENT
  Age: 48 Year
  Sex: Female

DRUGS (6)
  1. FLUCONAZOLE. [Suspect]
     Active Substance: FLUCONAZOLE
     Dosage: 200 MG, 2X/DAY
     Route: 048
     Dates: start: 20141231
  2. FLUCONAZOLE. [Suspect]
     Active Substance: FLUCONAZOLE
     Dosage: 400 MG, UNK
  3. FLUCONAZOLE. [Suspect]
     Active Substance: FLUCONAZOLE
     Dosage: 100 MG, UNK
     Dates: start: 201412
  4. FLUCONAZOLE. [Suspect]
     Active Substance: FLUCONAZOLE
     Indication: SYSTEMIC MYCOSIS
     Dosage: 200 MG, 2X/DAY
     Route: 048
     Dates: start: 201103
  5. FLUCONAZOLE. [Suspect]
     Active Substance: FLUCONAZOLE
     Dosage: 300 MG, UNK
     Dates: start: 201412
  6. FLUCONAZOLE. [Suspect]
     Active Substance: FLUCONAZOLE
     Indication: SYSTEMIC MYCOSIS
     Dosage: 200 MG, UNK
     Route: 048
     Dates: start: 201412

REACTIONS (13)
  - Respiration abnormal [Not Recovered/Not Resolved]
  - Somnolence [Unknown]
  - Feeling abnormal [Unknown]
  - Gait disturbance [Not Recovered/Not Resolved]
  - Heart rate abnormal [Not Recovered/Not Resolved]
  - Tinnitus [Not Recovered/Not Resolved]
  - Drug ineffective [Unknown]
  - Product odour abnormal [Unknown]
  - Therapeutic response unexpected [Unknown]
  - Fatigue [Unknown]
  - Tachycardia [Unknown]
  - Hypotension [Unknown]
  - Dizziness [Unknown]

NARRATIVE: CASE EVENT DATE: 2015
